FAERS Safety Report 6956094-2 (Version None)
Quarter: 2010Q3

REPORT INFORMATION
  Report Type: 
  Country: None (occurrence: None)
  Receive Date: 20100830
  Receipt Date: 20100824
  Transmission Date: 20110219
  Serious: Yes (Death, Hospitalization, Other)
  Sender: FDA-Public Use
  Company Number: US-ASTRAZENECA-2010SE28037

PATIENT
  Age: 467 Month
  Sex: Male
  Weight: 68 kg

DRUGS (16)
  1. SEROQUEL [Suspect]
     Indication: BIPOLAR I DISORDER
     Route: 048
     Dates: start: 20080901, end: 20090122
  2. SEROQUEL [Suspect]
     Indication: PSYCHOTIC DISORDER
     Route: 048
     Dates: start: 20080901, end: 20090122
  3. SEROQUEL [Suspect]
     Dosage: 9 DOSES OF 350 MG
     Route: 048
     Dates: start: 20090122, end: 20090122
  4. SEROQUEL [Suspect]
     Dosage: 9 DOSES OF 350 MG
     Route: 048
     Dates: start: 20090122, end: 20090122
  5. SEROQUEL [Suspect]
     Route: 048
     Dates: start: 20090205, end: 20090209
  6. SEROQUEL [Suspect]
     Route: 048
     Dates: start: 20090205, end: 20090209
  7. DEPAKOTE [Suspect]
     Indication: BIPOLAR I DISORDER
     Route: 048
     Dates: start: 20080901, end: 20090122
  8. DEPAKOTE [Suspect]
     Indication: PSYCHOTIC DISORDER
     Route: 048
     Dates: start: 20080901, end: 20090122
  9. DEPAKOTE [Suspect]
     Dosage: 9 DOSES OF 1500 MG IN EVENING TOTAL 13500 MG
     Route: 048
     Dates: start: 20090122, end: 20090122
  10. DEPAKOTE [Suspect]
     Dosage: 9 DOSES OF 1500 MG IN EVENING TOTAL 13500 MG
     Route: 048
     Dates: start: 20090122, end: 20090122
  11. DEPAKOTE [Suspect]
     Route: 048
     Dates: start: 20090205, end: 20090209
  12. DEPAKOTE [Suspect]
     Route: 048
     Dates: start: 20090205, end: 20090209
  13. LORAZEPAM [Suspect]
     Route: 065
     Dates: start: 20090122, end: 20090122
  14. CELEXA [Concomitant]
     Indication: DEPRESSION
     Route: 048
  15. VISTARIL [Concomitant]
     Indication: ANXIETY
     Route: 048
  16. IBUPROFEN [Concomitant]
     Route: 048
     Dates: start: 20090205

REACTIONS (15)
  - AGGRESSION [None]
  - ASPHYXIA [None]
  - COMA [None]
  - COMPLETED SUICIDE [None]
  - CRYING [None]
  - DEPRESSION [None]
  - DRUG TOXICITY [None]
  - EMOTIONAL DISTRESS [None]
  - FEAR [None]
  - HYPOREFLEXIA [None]
  - LOSS OF CONSCIOUSNESS [None]
  - OVERDOSE [None]
  - SUICIDAL IDEATION [None]
  - SUICIDE ATTEMPT [None]
  - WEIGHT DECREASED [None]
